FAERS Safety Report 7078370-8 (Version None)
Quarter: 2010Q4

REPORT INFORMATION
  Report Type: 
  Country: None (occurrence: None)
  Receive Date: 20101102
  Receipt Date: 20100928
  Transmission Date: 20110411
  Serious: Yes (Hospitalization)
  Sender: FDA-Public Use
  Company Number: US-BAYER-201028165NA

PATIENT
  Age: 23 Year
  Sex: Female
  Weight: 64 kg

DRUGS (4)
  1. YAZ [Suspect]
     Indication: CONTRACEPTION
     Route: 048
     Dates: start: 20071029, end: 20090901
  2. ACETAMINOPHEN [Concomitant]
  3. MULTIVITAMIN/ VITAM C [Concomitant]
  4. MECLIZINE [Concomitant]

REACTIONS (8)
  - ABDOMINAL PAIN UPPER [None]
  - APPENDICITIS [None]
  - CHOLECYSTITIS [None]
  - DIARRHOEA [None]
  - GALLBLADDER INJURY [None]
  - GASTROOESOPHAGEAL REFLUX DISEASE [None]
  - NAUSEA [None]
  - VOMITING [None]
